FAERS Safety Report 8189347-3 (Version None)
Quarter: 2012Q1

REPORT INFORMATION
  Report Type: 
  Country: None (occurrence: None)
  Receive Date: 20120307
  Receipt Date: 20120301
  Transmission Date: 20120608
  Serious: Yes (Hospitalization)
  Sender: FDA-Public Use
  Company Number: DE-AMGEN-DEUSP2012010505

PATIENT
  Age: 74 Year
  Sex: Male
  Weight: 106 kg

DRUGS (12)
  1. EUROBICALUTAMID [Concomitant]
     Indication: PROSTATE CANCER
     Dosage: 50 UNK, UNK
     Route: 048
  2. CIL [Concomitant]
     Dosage: UNK UNK, QD
  3. GLYBURIDE [Concomitant]
     Dosage: UNK UNK, QD
  4. ALLOPURINOL [Concomitant]
     Dosage: UNK UNK, QD
     Route: 048
  5. PROLIA [Suspect]
     Indication: PRODUCT USED FOR UNKNOWN INDICATION
     Dosage: 60 MG, Q6MO
     Route: 058
     Dates: start: 20101125
  6. MOXONIDIN [Concomitant]
  7. DEKRISTOL [Concomitant]
     Dosage: UNK UNK, Q3WK
  8. ENALAPRIL PLUS [Concomitant]
     Dosage: UNK UNK, QD
  9. BISOPROLOL FUMARATE [Concomitant]
     Dosage: UNK UNK, QD
  10. PROFACT [Concomitant]
     Indication: PROSTATE CANCER
     Dosage: 9.45 MG, Q3MO
     Route: 058
  11. LYRICA [Suspect]
     Indication: PRODUCT USED FOR UNKNOWN INDICATION
     Dosage: UNK
     Route: 048
  12. ENOXAPARIN SODIUM [Concomitant]

REACTIONS (4)
  - CHEST DISCOMFORT [None]
  - DYSPNOEA [None]
  - NEPHROGENIC ANAEMIA [None]
  - RENAL FAILURE [None]
